FAERS Safety Report 4951886-3 (Version None)
Quarter: 2006Q1

REPORT INFORMATION
  Report Type: 
  Country: None (occurrence: None)
  Receive Date: 20060323
  Receipt Date: 20050406
  Transmission Date: 20060701
  Serious: Yes (Hospitalization)
  Sender: FDA-Public Use
  Company Number: US-MERCK-0504USA01105

PATIENT
  Age: 71 Year
  Sex: Male
  Weight: 73 kg

DRUGS (2)
  1. VIOXX [Suspect]
     Indication: SHOULDER PAIN
     Route: 048
     Dates: start: 20000103, end: 20040730
  2. VIOXX [Suspect]
     Indication: ARTHRITIS
     Route: 048
     Dates: start: 20000103, end: 20040730

REACTIONS (6)
  - CAROTID BRUIT [None]
  - CORONARY ARTERY OCCLUSION [None]
  - DEPRESSED LEVEL OF CONSCIOUSNESS [None]
  - INJURY [None]
  - MYOCARDIAL INFARCTION [None]
  - PALPITATIONS [None]
